FAERS Safety Report 8804159 (Version 2)
Quarter: 2012Q4

REPORT INFORMATION
  Report Type: 
  Country: UY (occurrence: UY)
  Receive Date: 20120924
  Receipt Date: 20121002
  Transmission Date: 20130627
  Serious: Yes (Other)
  Sender: FDA-Public Use
  Company Number: UY-BAYER-2012-095965

PATIENT
  Age: 49 Year
  Sex: Female

DRUGS (2)
  1. QLAIRA [Suspect]
     Dosage: UNK
     Route: 048
     Dates: start: 201208
  2. QLAIRA [Suspect]

REACTIONS (3)
  - Amenorrhoea [Not Recovered/Not Resolved]
  - Tendonitis [Not Recovered/Not Resolved]
  - Urinary tract infection [Not Recovered/Not Resolved]
